FAERS Safety Report 19920016 (Version 2)
Quarter: 2021Q4

REPORT INFORMATION
  Report Type: Report from Study
  Country: BE (occurrence: BE)
  Receive Date: 20211005
  Receipt Date: 20211115
  Transmission Date: 20220303
  Serious: Yes (Hospitalization, Other)
  Sender: FDA-Public Use
  Company Number: BE-ABBVIE-21K-013-4090113-00

PATIENT
  Age: 76 Year
  Sex: Female
  Weight: 44 kg

DRUGS (17)
  1. CARBIDOPA\LEVODOPA [Suspect]
     Active Substance: CARBIDOPA\LEVODOPA
     Indication: Parkinson^s disease
     Dosage: MD 5.0 ML; CD 1.6 ML/HR, REMAINS 16 HOURS; ED 1.0 ML;
     Route: 050
     Dates: start: 20210712, end: 20210727
  2. CARBIDOPA\LEVODOPA [Suspect]
     Active Substance: CARBIDOPA\LEVODOPA
     Dosage: MD 5.5 ML; CD 1.9 ML/HR, REMAINS 16 HOURS; ED 1.0 ML;
     Route: 050
     Dates: start: 20210727, end: 20210728
  3. CARBIDOPA\LEVODOPA [Suspect]
     Active Substance: CARBIDOPA\LEVODOPA
     Dosage: MD 6.5 ML; CD 2.1 ML/HR, REMAINS 16 HOURS; ED 1.5 ML;
     Route: 050
     Dates: start: 20210728, end: 20210728
  4. CARBIDOPA\LEVODOPA [Suspect]
     Active Substance: CARBIDOPA\LEVODOPA
     Dosage: MD 6.5 ML; CD 2.3 ML/HR, REMAINS 16 HOURS; ED 2.0 ML;
     Route: 050
     Dates: start: 20210728, end: 20210729
  5. CARBIDOPA\LEVODOPA [Suspect]
     Active Substance: CARBIDOPA\LEVODOPA
     Dosage: MD 7.5 ML; CD 2.6 ML/HR, REMAINS 16 HOURS; ED 2.5 ML;
     Route: 050
     Dates: start: 20210729, end: 20210731
  6. CARBIDOPA\LEVODOPA [Suspect]
     Active Substance: CARBIDOPA\LEVODOPA
     Dosage: MD 7.5 ML; CD 2.9 ML/HR, REMAINS 16 HOURS; ED 2.5 ML;
     Route: 050
     Dates: start: 20210731, end: 20210802
  7. CARBIDOPA\LEVODOPA [Suspect]
     Active Substance: CARBIDOPA\LEVODOPA
     Dosage: MD 7.5 ML; CD 3.1 ML/HR, REMAINS 16 HOURS; ED 2.5 ML;
     Route: 050
     Dates: start: 20210802, end: 20210810
  8. CARBIDOPA\LEVODOPA [Suspect]
     Active Substance: CARBIDOPA\LEVODOPA
     Dosage: MD 7.5 ML; CD 3.3 ML/HR, REMAINS 16 HOURS; ED 3.0 ML;
     Route: 050
     Dates: start: 20210810, end: 20210820
  9. CARBIDOPA\LEVODOPA [Suspect]
     Active Substance: CARBIDOPA\LEVODOPA
     Dosage: MD 7.5 ML; CD 3.9 ML/HR, REMAINS 16 HOURS; ED 3.5 ML;
     Route: 050
     Dates: start: 20210820, end: 20210915
  10. CARBIDOPA\LEVODOPA [Suspect]
     Active Substance: CARBIDOPA\LEVODOPA
     Dosage: MD 7.5 ML; CD 3.7 ML/HR, REMAINS 16 HOURS; ED 3.5 ML;
     Route: 050
     Dates: start: 20210915, end: 20210923
  11. CARBIDOPA\LEVODOPA [Suspect]
     Active Substance: CARBIDOPA\LEVODOPA
     Dosage: MD 3.0 ML; CD 1.5 ML/HR, REMAINS 16 HOURS; ED 1.0 ML;
     Route: 050
     Dates: start: 20210923
  12. BENSERAZIDE\LEVODOPA [Concomitant]
     Active Substance: BENSERAZIDE\LEVODOPA
     Indication: Product used for unknown indication
  13. STALEVO [Concomitant]
     Active Substance: CARBIDOPA\ENTACAPONE\LEVODOPA
     Indication: Product used for unknown indication
  14. ETILEFRINE HYDROCHLORIDE [Concomitant]
     Active Substance: ETILEFRINE HYDROCHLORIDE
     Indication: Product used for unknown indication
  15. FOSAVANCE [Concomitant]
     Active Substance: ALENDRONATE SODIUM\CHOLECALCIFEROL
     Indication: Product used for unknown indication
  16. LIORESAL [Concomitant]
     Active Substance: BACLOFEN
     Indication: Product used for unknown indication
  17. BENSERAZIDE\LEVODOPA [Concomitant]
     Active Substance: BENSERAZIDE\LEVODOPA
     Indication: Dopaminergic drug therapy
     Dosage: PROLOPA DISP
     Route: 048

REACTIONS (3)
  - Eating disorder [Recovering/Resolving]
  - Gait disturbance [Recovering/Resolving]
  - Fall [Unknown]

NARRATIVE: CASE EVENT DATE: 20210101
